FAERS Safety Report 19769704 (Version 1)
Quarter: 2021Q3

REPORT INFORMATION
  Report Type: Spontaneous
  Country: DE (occurrence: DE)
  Receive Date: 20210831
  Receipt Date: 20210831
  Transmission Date: 20211014
  Serious: Yes (Other)
  Sender: FDA-Public Use
  Company Number: DE-MYLANLABS-2021M1056541

PATIENT
  Age: 34 Year
  Sex: Female

DRUGS (2)
  1. LORAZEPAM. [Suspect]
     Active Substance: LORAZEPAM
     Indication: PRODUCT USED FOR UNKNOWN INDICATION
     Dosage: UNK
  2. PREGABALIN. [Suspect]
     Active Substance: PREGABALIN
     Indication: PRODUCT USED FOR UNKNOWN INDICATION
     Dosage: UNK

REACTIONS (9)
  - Drug abuse [Unknown]
  - Logorrhoea [Unknown]
  - Nervousness [Unknown]
  - Restlessness [Unknown]
  - Dysarthria [Unknown]
  - Mydriasis [Unknown]
  - Agitation [Unknown]
  - Mental disorder [Unknown]
  - Vestibular disorder [Unknown]
